FAERS Safety Report 6966818-6 (Version None)
Quarter: 2010Q3

REPORT INFORMATION
  Report Type: 
  Country: None (occurrence: None)
  Receive Date: 20100906
  Receipt Date: 20100824
  Transmission Date: 20110219
  Serious: Yes (Other)
  Sender: FDA-Public Use
  Company Number: PHHY2010JP56160

PATIENT
  Age: 83 Year
  Sex: Female

DRUGS (5)
  1. FLUVASTATIN [Suspect]
     Indication: DYSLIPIDAEMIA
     Dosage: 20 MG DAILY
     Route: 048
     Dates: start: 20050817, end: 20100720
  2. FLUORESCEIN SODIUM [Interacting]
     Dosage: UNK
     Dates: start: 20090101
  3. INDOCYANINE GREEN [Interacting]
     Dosage: UNK
     Dates: start: 20090101
  4. CETIRIZINE HYDROCHLORIDE [Concomitant]
     Dosage: 20 MG
     Route: 048
     Dates: start: 20100720
  5. URSO 250 [Concomitant]
     Dosage: 600 MG
     Route: 048
     Dates: start: 20090721

REACTIONS (3)
  - DRUG INTERACTION [None]
  - LIVER DISORDER [None]
  - PHOTOCOAGULATION [None]
